FAERS Safety Report 5092074-2 (Version None)
Quarter: 2006Q3

REPORT INFORMATION
  Report Type: 
  Country: None (occurrence: None)
  Receive Date: 20060828
  Receipt Date: 20060828
  Transmission Date: 20061208
  Serious: Yes (Hospitalization)
  Sender: FDA-Public Use
  Company Number: None

PATIENT
  Sex: Female
  Weight: 58.2 kg

DRUGS (3)
  1. FLUOROURACIL [Suspect]
     Dosage: 2950 MG
  2. LEUCOVORIN CALCIUM [Suspect]
     Dosage: 675 MG
  3. ELOXATIN [Suspect]
     Dosage: 110 MG

REACTIONS (4)
  - CENTRAL NERVOUS SYSTEM LESION [None]
  - CEREBRAL HAEMORRHAGE [None]
  - DEEP VEIN THROMBOSIS [None]
  - PULMONARY EMBOLISM [None]
